FAERS Safety Report 25075028 (Version 1)
Quarter: 2025Q1

REPORT INFORMATION
  Report Type: Report from Study
  Country: US (occurrence: US)
  Receive Date: 20250313
  Receipt Date: 20250313
  Transmission Date: 20250408
  Serious: Yes (Other)
  Sender: CSL BEHRING
  Company Number: US-BEH-2025198379

PATIENT
  Age: 68 Year
  Sex: Male
  Weight: 92.971 kg

DRUGS (1)
  1. ZEMAIRA [Suspect]
     Active Substance: .ALPHA.1-PROTEINASE INHIBITOR HUMAN
     Indication: Alpha-1 antitrypsin deficiency
     Dosage: QW(PRODUCT STRENGTH:60)
     Route: 042

REACTIONS (1)
  - Pseudomonas infection [Unknown]
